FAERS Safety Report 5370760-4 (Version None)
Quarter: 2007Q2

REPORT INFORMATION
  Report Type: 
  Country: None (occurrence: None)
  Receive Date: 20070618
  Receipt Date: 20061208
  Transmission Date: 20071010
  Serious: Yes (Hospitalization, Other)
  Sender: FDA-Public Use
  Company Number: PHEH2006US13127

PATIENT
  Age: 52 Year
  Sex: Male

DRUGS (3)
  1. GLEEVEC [Suspect]
     Indication: CHRONIC MYELOID LEUKAEMIA
     Dosage: ORAL
     Route: 048
     Dates: start: 20051001, end: 20061018
  2. TYLENOL W/ CODEINE [Concomitant]
  3. ANTIHYPERTENSIVES (NO INGREDIENTS/SUBSTANCES) [Concomitant]

REACTIONS (9)
  - ABDOMINAL PAIN [None]
  - ABDOMINAL WALL ABSCESS [None]
  - COLOSTOMY [None]
  - INCISIONAL DRAINAGE [None]
  - INTESTINAL RESECTION [None]
  - LARGE INTESTINE PERFORATION [None]
  - PERITONITIS [None]
  - PYREXIA [None]
  - TOOTHACHE [None]
